FAERS Safety Report 16200504 (Version 1)
Quarter: 2019Q2

REPORT INFORMATION
  Report Type: Spontaneous
  Country: CN (occurrence: CN)
  Receive Date: 20190416
  Receipt Date: 20190416
  Transmission Date: 20190711
  Serious: Yes (Other)
  Sender: FDA-Public Use
  Company Number: CN-ROCHE-2295056

PATIENT
  Age: 61 Year
  Sex: Female

DRUGS (10)
  1. LAPATINIB [Concomitant]
     Active Substance: LAPATINIB
     Indication: INVASIVE BREAST CARCINOMA
     Route: 048
  2. CYCLOPHOSPHAMIDE. [Concomitant]
     Active Substance: CYCLOPHOSPHAMIDE
  3. NAVELBINE [Concomitant]
     Active Substance: VINORELBINE TARTRATE
     Indication: INVASIVE BREAST CARCINOMA
     Dosage: AT DAY1, DAY8
     Route: 048
  4. PHARMORUBICIN [Concomitant]
     Active Substance: EPIRUBICIN
  5. FLUOROURACIL. [Concomitant]
     Active Substance: FLUOROURACIL
  6. PACLITAXEL. [Concomitant]
     Active Substance: PACLITAXEL
  7. TAMOXIFEN [Concomitant]
     Active Substance: TAMOXIFEN
  8. DOCETAXEL. [Concomitant]
     Active Substance: DOCETAXEL
  9. LETROZOLE. [Concomitant]
     Active Substance: LETROZOLE
  10. XELODA [Suspect]
     Active Substance: CAPECITABINE
     Indication: INVASIVE BREAST CARCINOMA
     Route: 048

REACTIONS (10)
  - Benign neoplasm of thyroid gland [Unknown]
  - Hepatic cyst [Unknown]
  - Renal neoplasm [Unknown]
  - Cholelithiasis [Unknown]
  - Ovarian cyst [Unknown]
  - Hepatic steatosis [Unknown]
  - Uterine leiomyoma [Unknown]
  - Renal cyst [Unknown]
  - Cholecystitis [Unknown]
  - Cervical cyst [Unknown]
